FAERS Safety Report 13181324 (Version 1)
Quarter: 2017Q1

REPORT INFORMATION
  Report Type: Report from Study
  Country: US (occurrence: US)
  Receive Date: 20170202
  Receipt Date: 20170202
  Transmission Date: 20170428
  Serious: Yes (Death, Other)
  Sender: FDA-Public Use
  Company Number: US-ARIAD-2016US007069

PATIENT
  Sex: Male

DRUGS (4)
  1. ICLUSIG [Suspect]
     Active Substance: PONATINIB
     Indication: CHRONIC MYELOID LEUKAEMIA
     Dosage: 45 MG, QD
     Route: 048
     Dates: start: 20160907
  2. ICLUSIG [Suspect]
     Active Substance: PONATINIB
     Dosage: 15 MG, QD
     Route: 048
  3. ICLUSIG [Suspect]
     Active Substance: PONATINIB
     Dosage: 15 MG, BID
     Route: 048
  4. ICLUSIG [Suspect]
     Active Substance: PONATINIB
     Dosage: 30 MG, QD
     Route: 048

REACTIONS (14)
  - Blood sodium increased [Unknown]
  - Death [Fatal]
  - Blood glucose increased [Unknown]
  - Chronic myeloid leukaemia transformation [Unknown]
  - Hypotension [Unknown]
  - Blood magnesium increased [Unknown]
  - Platelet count increased [Unknown]
  - Platelet count decreased [Recovered/Resolved]
  - Blood potassium decreased [Unknown]
  - Pyrexia [Unknown]
  - Large intestine polyp [Unknown]
  - Blood chloride increased [Unknown]
  - Hyperuricaemia [Unknown]
  - Carbon dioxide decreased [Unknown]
